FAERS Safety Report 16753243 (Version 2)
Quarter: 2020Q3

REPORT INFORMATION
  Report Type: Spontaneous
  Country: US (occurrence: US)
  Receive Date: 20190829
  Receipt Date: 20200810
  Transmission Date: 20201102
  Serious: Yes (Other)
  Sender: FDA-Public Use
  Company Number: US-SUN PHARMACEUTICAL INDUSTRIES LTD-2019R1-218533

PATIENT
  Age: 12 Month
  Sex: Female

DRUGS (13)
  1. OXCARBAZEPINE. [Suspect]
     Active Substance: OXCARBAZEPINE
     Indication: SEIZURE
     Dosage: UNK
     Route: 065
  2. CLOBAZAM. [Concomitant]
     Active Substance: CLOBAZAM
     Indication: PRODUCT USED FOR UNKNOWN INDICATION
     Dosage: UNK
     Route: 065
  3. PHENOBARBITAL. [Suspect]
     Active Substance: PHENOBARBITAL
     Dosage: DECREASED EVERY 2 TO 3 WEEKS OVER AN 8?WEEK PERIOD
     Route: 065
  4. TOPIRAMATE. [Suspect]
     Active Substance: TOPIRAMATE
     Indication: SEIZURE
     Dosage: UNK
     Route: 065
  5. LEVETIRACETAM. [Suspect]
     Active Substance: LEVETIRACETAM
     Indication: SEIZURE
     Dosage: UNK
     Route: 065
  6. PYRIDOXINE [Suspect]
     Active Substance: PYRIDOXINE
     Indication: SEIZURE
     Dosage: UNK
     Route: 065
  7. QUNIDINE [Concomitant]
     Dosage: GRADUALLY TITRATED UP TO 40 MG/KG/D
     Route: 065
  8. QUNIDINE [Concomitant]
     Indication: GENE MUTATION
     Dosage: 15 MG/KG/D DIVIDED EVERY 6 HOURS
     Route: 065
  9. LORAZEPAM. [Concomitant]
     Active Substance: LORAZEPAM
     Indication: SEIZURE
     Dosage: UNK
     Route: 065
  10. FOSPHENYTOIN [Suspect]
     Active Substance: FOSPHENYTOIN
     Indication: SEIZURE
     Dosage: UNK
     Route: 065
  11. CLONAZEPAM. [Suspect]
     Active Substance: CLONAZEPAM
     Indication: SEIZURE
     Dosage: UNK
     Route: 065
  12. QUNIDINE [Concomitant]
     Dosage: INCREASED UP TO 68 MG/KG/D
     Route: 065
  13. PHENOBARBITAL. [Suspect]
     Active Substance: PHENOBARBITAL
     Indication: GENE MUTATION
     Dosage: 9.4 MILLIGRAM/KILOGRAM, DAILY
     Route: 065

REACTIONS (1)
  - Treatment failure [Unknown]
